FAERS Safety Report 19277382 (Version 2)
Quarter: 2021Q2

REPORT INFORMATION
  Report Type: Report from Study
  Country: CA (occurrence: CA)
  Receive Date: 20210520
  Receipt Date: 20210526
  Transmission Date: 20210717
  Serious: Yes (Hospitalization)
  Sender: FDA-Public Use
  Company Number: CA-IPSEN BIOPHARMACEUTICALS, INC.-2021-11200

PATIENT
  Age: 61 Year
  Sex: Male

DRUGS (1)
  1. SOMATULINE AUTOGEL [Suspect]
     Active Substance: LANREOTIDE ACETATE
     Indication: NEUROENDOCRINE TUMOUR
     Route: 058
     Dates: start: 20200625, end: 20210401

REACTIONS (4)
  - Urinary tract infection [Unknown]
  - Malaise [Unknown]
  - Drug ineffective [Unknown]
  - Post procedural complication [Unknown]

NARRATIVE: CASE EVENT DATE: 2021
